FAERS Safety Report 24798997 (Version 3)
Quarter: 2025Q1

REPORT INFORMATION
  Report Type: Report from Study
  Country: IN (occurrence: IN)
  Receive Date: 20250102
  Receipt Date: 20250315
  Transmission Date: 20250409
  Serious: Yes (Other)
  Sender: ROCHE
  Company Number: IN-ROCHE-10000021270

PATIENT
  Age: 53 Year
  Sex: Male

DRUGS (1)
  1. TECENTRIQ [Suspect]
     Active Substance: ATEZOLIZUMAB
     Indication: Lung neoplasm malignant
     Dosage: 13TH CYCLE INTERVAL- 24TH DAY
     Route: 042
     Dates: start: 20240215

REACTIONS (16)
  - Off label use [Unknown]
  - Metastatic neoplasm [Unknown]
  - Aorticopulmonary septal defect [Unknown]
  - Soft tissue disorder [Unknown]
  - Hypertension [Unknown]
  - Soft tissue mass [Unknown]
  - Neoplasm [Unknown]
  - Nodule [Unknown]
  - Pulmonary mass [Unknown]
  - Lymphadenopathy [Unknown]
  - Lung opacity [Unknown]
  - Pulmonary vascular disorder [Unknown]
  - Vascular neoplasm [Unknown]
  - Acquired diaphragmatic eventration [Unknown]
  - Lung disorder [Unknown]
  - Aortic disorder [Unknown]

NARRATIVE: CASE EVENT DATE: 20240507
